FAERS Safety Report 7481268-4 (Version None)
Quarter: 2011Q2

REPORT INFORMATION
  Report Type: 
  Country: None (occurrence: None)
  Receive Date: 20110512
  Receipt Date: 20110512
  Transmission Date: 20111010
  Serious: Yes (Hospitalization)
  Sender: FDA-Public Use
  Company Number: None

PATIENT
  Sex: Female
  Weight: 53.2 kg

DRUGS (1)
  1. NEURONTIN [Suspect]
     Indication: NEURALGIA
     Dosage: 300 MG 3 X DAILY ORALLY
     Route: 048
     Dates: start: 20100801, end: 20101001

REACTIONS (5)
  - PAIN [None]
  - SUICIDAL IDEATION [None]
  - DEPRESSION [None]
  - GRIEF REACTION [None]
  - AFFECTIVE DISORDER [None]
